FAERS Safety Report 7438049-7 (Version None)
Quarter: 2011Q2

REPORT INFORMATION
  Report Type: 
  Country: None (occurrence: None)
  Receive Date: 20110426
  Receipt Date: 20110418
  Transmission Date: 20111010
  Serious: Yes (Other)
  Sender: FDA-Public Use
  Company Number: PHFR2011GB01508

PATIENT
  Sex: Female

DRUGS (10)
  1. LANSOPRAZOLE [Concomitant]
     Dosage: 30 MG, UNK
  2. ASCORBIC ACID [Concomitant]
     Dosage: 500 MG, UNK
  3. SIMVASTATIN [Concomitant]
     Dosage: 20 MG, QD
     Route: 048
  4. CLOZARIL [Suspect]
     Dosage: UNK MG, UNK
     Route: 048
     Dates: start: 20101027
  5. METFORMIN [Concomitant]
     Dosage: 500 MG, BID
     Route: 048
  6. ADCAL [Concomitant]
     Dosage: UNK DF, UNK
  7. PAROXETINE HCL [Concomitant]
     Dosage: 20 MG, UNK
     Route: 048
  8. ALENDRONATE SODIUM [Concomitant]
     Dosage: 70 UG, QW
     Route: 048
  9. CLOZARIL [Suspect]
     Dosage: 225 MG NOCTE
     Route: 048
     Dates: start: 20101101
  10. NAPROXEN [Concomitant]
     Dosage: 500 MG, UNK

REACTIONS (3)
  - ANAEMIA [None]
  - OSTEOPOROSIS [None]
  - HAEMOGLOBIN DECREASED [None]
